FAERS Safety Report 4578649-5 (Version None)
Quarter: 2005Q1

REPORT INFORMATION
  Report Type: 
  Country: None (occurrence: None)
  Receive Date: 20050209
  Receipt Date: 20050209
  Transmission Date: 20050727
  Serious: No
  Sender: FDA-Public Use
  Company Number: None

PATIENT
  Sex: Male
  Weight: 90.7194 kg

DRUGS (1)
  1. ZOLOFT [Suspect]
     Indication: BACK INJURY
     Dosage: NUNONE

REACTIONS (4)
  - ABNORMAL BEHAVIOUR [None]
  - ANGER [None]
  - HOMICIDAL IDEATION [None]
  - HOSTILITY [None]
